FAERS Safety Report 7508826-2 (Version None)
Quarter: 2011Q2

REPORT INFORMATION
  Report Type: 
  Country: None (occurrence: None)
  Receive Date: 20110527
  Receipt Date: 20091119
  Transmission Date: 20111010
  Serious: Yes (Death, Other)
  Sender: FDA-Public Use
  Company Number: US-BAYER-200940056NA

PATIENT
  Age: 62 Year
  Sex: Female
  Weight: 82.086 kg

DRUGS (23)
  1. METOPROLOL TARTRATE [Concomitant]
     Dosage: UNK
     Route: 042
     Dates: start: 20000419
  2. LASIX [Concomitant]
     Dosage: UNK
     Route: 042
     Dates: start: 20000418
  3. VERSED [Concomitant]
     Dosage: UNK
     Route: 042
     Dates: start: 20000421, end: 20000421
  4. ESMOLOL [Concomitant]
     Dosage: UNK
     Route: 042
     Dates: start: 20000421, end: 20000421
  5. INSULIN [Concomitant]
     Dosage: INJECTION
     Dates: start: 20000420
  6. NITROGLYCERIN [Concomitant]
     Dosage: UNK
     Route: 042
     Dates: start: 20000419
  7. HEPARIN [Concomitant]
     Dosage: UNK
     Route: 042
     Dates: start: 20000421, end: 20000421
  8. PAVULON [Concomitant]
     Dosage: UNK
     Route: 042
     Dates: start: 20000421, end: 20000421
  9. EPHEDRINE [Concomitant]
     Dosage: UNK
     Route: 042
     Dates: start: 20000421, end: 20000421
  10. DOPAMINE HCL [Concomitant]
     Dosage: UNK
     Route: 042
     Dates: start: 20000421, end: 20000421
  11. MOTRIN [Concomitant]
     Dosage: UNK
     Route: 048
     Dates: start: 20000417
  12. LIDOCAINE [Concomitant]
     Dosage: UNK
     Route: 042
     Dates: start: 20000420
  13. TRASYLOL [Suspect]
     Indication: CORONARY ARTERY BYPASS
     Dosage: 100CC PUMP PRIME, 50ML/HR MAINTENANCE DOSE
     Route: 042
     Dates: start: 20000421, end: 20000421
  14. ALBUMIN (HUMAN) [Concomitant]
     Dosage: UNK
     Dates: start: 20000420
  15. BUMEX [Concomitant]
     Dosage: UNK
     Route: 042
     Dates: start: 20000420
  16. PROTAMINE SULFATE [Concomitant]
     Dosage: UNK
     Route: 042
     Dates: start: 20000421, end: 20000421
  17. ACETYLSALICYLIC ACID SRT [Concomitant]
     Dosage: UNK
     Route: 048
     Dates: start: 20000418
  18. LOVENOX [Concomitant]
     Dosage: UNK
     Route: 058
     Dates: start: 20000418
  19. EPINEPHRINE [Concomitant]
     Dosage: UNK
     Route: 042
     Dates: start: 20000421, end: 20000421
  20. DOBUTAMINE HYDROCHLORIDE [Concomitant]
     Dosage: UNK
     Route: 042
     Dates: start: 20000421, end: 20000421
  21. LOPRESSOR [Concomitant]
     Dosage: UNK
     Route: 042
     Dates: start: 20000420
  22. IBUPROFEN [Concomitant]
     Dosage: UNK
     Route: 048
     Dates: start: 20000420
  23. AMIODARONE HCL [Concomitant]
     Dosage: UNK
     Route: 042
     Dates: start: 20000421, end: 20000421

REACTIONS (6)
  - DEATH [None]
  - RENAL FAILURE ACUTE [None]
  - UNEVALUABLE EVENT [None]
  - INJURY [None]
  - RENAL FAILURE [None]
  - PAIN [None]
